FAERS Safety Report 5084671-5 (Version None)
Quarter: 2006Q3

REPORT INFORMATION
  Report Type: 
  Country: None (occurrence: None)
  Receive Date: 20060821
  Receipt Date: 20060809
  Transmission Date: 20061208
  Serious: Yes (Hospitalization)
  Sender: FDA-Public Use
  Company Number: ES-JNJFOC-20060804410

PATIENT
  Age: 39 Year
  Sex: Male

DRUGS (6)
  1. IBUPROFEN [Suspect]
     Indication: PAIN
     Route: 048
  2. CLINDAMYCIN HYDROCHLORIDE [Suspect]
     Indication: HIV INFECTION
     Route: 048
  3. NEVIRAPINE [Suspect]
     Indication: HIV INFECTION
     Route: 048
  4. LAMIVUDINE [Suspect]
     Indication: HIV INFECTION
     Route: 048
  5. TENOFOVIR [Suspect]
     Indication: HIV INFECTION
     Route: 048
  6. AMOXICILLIN [Suspect]
     Indication: CELLULITIS
     Route: 048

REACTIONS (1)
  - HEPATITIS CHOLESTATIC [None]
